FAERS Safety Report 4474201-0 (Version None)
Quarter: 2004Q4

REPORT INFORMATION
  Report Type: 
  Country: None (occurrence: None)
  Receive Date: 20041013
  Receipt Date: 20041013
  Transmission Date: 20050328
  Serious: Yes (Other)
  Sender: FDA-Public Use
  Company Number: None

PATIENT
  Age: 62 Year
  Sex: Female
  Weight: 56.6996 kg

DRUGS (1)
  1. SYNTHROID [Suspect]
     Indication: HYPOTHYROIDISM
     Dosage: ONE PILL ONCE DAILY
     Dates: start: 20040922, end: 20041010

REACTIONS (5)
  - ARRHYTHMIA [None]
  - DYSPNOEA EXERTIONAL [None]
  - FATIGUE [None]
  - MALAISE [None]
  - PHARMACEUTICAL PRODUCT COUNTERFEIT [None]
